FAERS Safety Report 18230559 (Version 11)
Quarter: 2022Q3

REPORT INFORMATION
  Report Type: Report from Study
  Country: KR (occurrence: None)
  Receive Date: 20200903
  Receipt Date: 20220713
  Transmission Date: 20221026
  Serious: Yes (Hospitalization)
  Sender: FDA-Public Use
  Company Number: KR-ROCHE-2669065

PATIENT
  Age: 68 Year
  Sex: Male
  Weight: 61.9 kg

DRUGS (29)
  1. ATEZOLIZUMAB [Suspect]
     Active Substance: ATEZOLIZUMAB
     Indication: Pancreatic carcinoma metastatic
     Dosage: ON 25/AUG/2020, DATE OF MOST RECENT DOSE OF ATEZOLIZUMAB PRIOR TO AE ONSET.
     Route: 042
     Dates: start: 20200813
  2. GEMCITABINE [Suspect]
     Active Substance: GEMCITABINE
     Indication: Pancreatic carcinoma metastatic
     Dosage: ON 25/AUG/2020, RECEIVED THE MOST RECENT DOSE OF GEMCITABINE PRIOR TO AE ONSET: 1700 MG
     Route: 042
     Dates: start: 20200813
  3. PACLITAXEL [Suspect]
     Active Substance: PACLITAXEL
     Indication: Pancreatic carcinoma metastatic
     Dosage: ON 25/AUG/2020, RECEIVED  MOST RECENT DOSE OF NAB-PACLITAXEL PRIOR TO AE ONSET: 210 (UNIT NOT REPORT
     Route: 042
     Dates: start: 20200813
  4. ETRUMADENANT [Suspect]
     Active Substance: ETRUMADENANT
     Indication: Pancreatic carcinoma metastatic
     Dosage: DOSE OF LAST AB928 ADMINISTERED PRIOR TO AE ONSET ON 28/AUG/2020
     Route: 048
     Dates: start: 20200813
  5. TWYNSTA [Concomitant]
     Active Substance: AMLODIPINE BESYLATE\TELMISARTAN
     Indication: Hypertension
     Dates: start: 2018
  6. SMECTA [Concomitant]
     Active Substance: MONTMORILLONITE
     Indication: Diarrhoea
     Dates: start: 20200730, end: 20200812
  7. TARGIN PR [Concomitant]
     Indication: Tumour pain
     Dates: start: 20200730
  8. NORZYME [Concomitant]
     Indication: Dyspepsia
     Dates: start: 20200730
  9. NEXIUM [Concomitant]
     Active Substance: ESOMEPRAZOLE MAGNESIUM
     Indication: Dyspepsia
     Dates: start: 20200730
  10. NEXIUM [Concomitant]
     Active Substance: ESOMEPRAZOLE MAGNESIUM
     Route: 048
     Dates: start: 20200629
  11. OXYCODONE HYDROCHLORIDE [Concomitant]
     Active Substance: OXYCODONE HYDROCHLORIDE
     Indication: Tumour pain
     Dates: start: 20200806
  12. OXYCODONE HYDROCHLORIDE [Concomitant]
     Active Substance: OXYCODONE HYDROCHLORIDE
     Indication: Abdominal pain
     Route: 048
     Dates: start: 20200902
  13. MEGACE F [Concomitant]
     Indication: Decreased appetite
     Route: 048
     Dates: start: 20200818
  14. URSODIOL [Concomitant]
     Active Substance: URSODIOL
     Indication: Prophylaxis
     Dates: start: 20200818
  15. DESOWEN [Concomitant]
     Active Substance: DESONIDE
     Indication: Rash
     Route: 061
     Dates: start: 20200825
  16. XYZAL [Concomitant]
     Active Substance: LEVOCETIRIZINE DIHYDROCHLORIDE
     Indication: Rash
     Dates: start: 20200825
  17. PACKED RBC [Concomitant]
     Indication: Anaemia
     Dates: start: 20200830, end: 20200830
  18. PENIRAMIN [Concomitant]
     Indication: Premedication
     Dates: start: 20200830, end: 20200830
  19. HERBALS [Concomitant]
     Active Substance: HERBALS
     Indication: Dyspepsia
     Dates: start: 20200802, end: 20200803
  20. PROAMIN [Concomitant]
     Dates: start: 20200804, end: 20200804
  21. MEPERIDINE HYDROCHLORIDE [Concomitant]
     Active Substance: MEPERIDINE HYDROCHLORIDE
     Indication: Premedication
     Dates: start: 20200805, end: 20200808
  22. BROPIUM [Concomitant]
     Dates: start: 20200829, end: 20200829
  23. CALCIUM CHLORIDE\POTASSIUM CHLORIDE\SODIUM CHLORIDE\SODIUM LACTATE [Concomitant]
     Active Substance: CALCIUM CHLORIDE\POTASSIUM CHLORIDE\SODIUM CHLORIDE\SODIUM LACTATE
     Dates: start: 20200829, end: 20200902
  24. GRASIN [Concomitant]
     Indication: Neutrophil count decreased
     Dates: start: 20200830, end: 20200830
  25. NUTRIFLEX LIPID PERI [Concomitant]
     Dates: start: 20200830, end: 20200830
  26. HYDROCORTISONE SODIUM SUCCINATE [Concomitant]
     Active Substance: HYDROCORTISONE SODIUM SUCCINATE
     Dates: start: 20200830, end: 20200830
  27. MAGNESIUM HYDROXIDE [Concomitant]
     Active Substance: MAGNESIUM HYDROXIDE
     Indication: Constipation
     Dates: start: 20200830, end: 20200901
  28. COMBIFLEX PERI [Concomitant]
     Dates: start: 20200831
  29. LAMINA-G [Concomitant]
     Indication: Dyspepsia
     Dates: start: 20200901

REACTIONS (1)
  - Abdominal pain [Recovered/Resolved]

NARRATIVE: CASE EVENT DATE: 20200829
